FAERS Safety Report 5975353-3 (Version None)
Quarter: 2008Q4

REPORT INFORMATION
  Report Type: 
  Country: None (occurrence: None)
  Receive Date: 20081202
  Receipt Date: 20081121
  Transmission Date: 20090506
  Serious: Yes (Other)
  Sender: FDA-Public Use
  Company Number: TR-WYE-H02100408

PATIENT
  Sex: Female
  Weight: 72 kg

DRUGS (3)
  1. EFFEXOR [Suspect]
     Indication: MAJOR DEPRESSION
     Route: 048
  2. EFFEXOR [Suspect]
     Dosage: GRADUALLY INCREASED
     Route: 048
  3. EFFEXOR [Suspect]
     Route: 048

REACTIONS (1)
  - PARAPSORIASIS [None]
